FAERS Safety Report 4435355-5 (Version None)
Quarter: 2004Q3

REPORT INFORMATION
  Report Type: 
  Country: None (occurrence: None)
  Receive Date: 20040826
  Receipt Date: 20040813
  Transmission Date: 20050211
  Serious: Yes (Hospitalization)
  Sender: FDA-Public Use
  Company Number: 238661

PATIENT
  Age: 42 Year
  Sex: Female

DRUGS (4)
  1. INSULATARD FLEXPEN (INSULIN HUMAN) SUSPENSION FOR INJECTION, 100IU/ML [Suspect]
     Indication: DIABETES MELLITUS INSULIN-DEPENDENT
  2. ACTRAPID (INSULIN HUMAN) SOLUTION FOR INJECTION, 100IU/ML [Suspect]
     Indication: DIABETES MELLITUS INSULIN-DEPENDENT
  3. ATARAX [Concomitant]
  4. ZELDOX /SWE/ (ZIPRASIDONE HYDROCHLORIDE) [Concomitant]

REACTIONS (3)
  - HYPOGLYCAEMIC COMA [None]
  - LOSS OF CONSCIOUSNESS [None]
  - MUSCLE CRAMP [None]
